FAERS Safety Report 6648362-9 (Version None)
Quarter: 2010Q1

REPORT INFORMATION
  Report Type: 
  Country: None (occurrence: None)
  Receive Date: 20100324
  Receipt Date: 20100310
  Transmission Date: 20100710
  Serious: Yes (Hospitalization, Other)
  Sender: FDA-Public Use
  Company Number: US-ELI_LILLY_AND_COMPANY-US201002002471

PATIENT
  Sex: Female

DRUGS (17)
  1. FORTEO [Suspect]
     Indication: OSTEOPOROSIS
     Dosage: 20 UG, DAILY (1/D)
     Dates: start: 20090101
  2. FORTEO [Suspect]
     Dosage: 20 UG, DAILY (1/D)
     Dates: start: 20100201
  3. CORTICOSTEROIDS [Concomitant]
     Indication: DYSPNOEA
  4. ATROVENT [Concomitant]
  5. ALBUTEROL [Concomitant]
  6. BUDESONIDE [Concomitant]
  7. LEXAPRO [Concomitant]
  8. SPIRIVA [Concomitant]
  9. ATENOLOL [Concomitant]
  10. XANAX [Concomitant]
  11. ASPIRIN [Concomitant]
  12. CALCIUM [Concomitant]
  13. NEXIUM [Concomitant]
  14. ZOCOR [Concomitant]
  15. RAMIPRIL [Concomitant]
  16. TYLENOL (CAPLET) [Concomitant]
     Dosage: UNK, AS NEEDED
  17. PREDNISONE [Concomitant]

REACTIONS (5)
  - CARDIAC DISORDER [None]
  - CAROTID ARTERY OCCLUSION [None]
  - FLUID RETENTION [None]
  - HEART RATE INCREASED [None]
  - MYOCARDIAL INFARCTION [None]
